FAERS Safety Report 25258123 (Version 2)
Quarter: 2025Q3

REPORT INFORMATION
  Report Type: Spontaneous
  Country: CH (occurrence: CH)
  Receive Date: 20250501
  Receipt Date: 20250803
  Transmission Date: 20251021
  Serious: Yes (Hospitalization)
  Sender: ALEXION PHARMACEUTICALS
  Company Number: None

PATIENT
  Age: 84 Year
  Sex: Female
  Weight: 67 kg

DRUGS (18)
  1. ESOMEPRAZOLE [Interacting]
     Active Substance: ESOMEPRAZOLE
     Indication: Product used for unknown indication
     Dates: start: 20250228, end: 20250228
  2. ESOMEPRAZOLE [Interacting]
     Active Substance: ESOMEPRAZOLE
     Dosage: 8 MILLIGRAM, 1/HR
     Dates: start: 20250228, end: 20250303
  3. ESOMEPRAZOLE [Interacting]
     Active Substance: ESOMEPRAZOLE
     Dosage: 40 MILLIGRAM, EVERY 12 HRS
     Dates: start: 20250303
  4. LASIX [Suspect]
     Active Substance: FUROSEMIDE
     Indication: Product used for unknown indication
     Dosage: 20 MILLIGRAM, EVERY 12 HRS
     Dates: start: 20250304, end: 20250305
  5. CIPROFLOXACIN [Interacting]
     Active Substance: CIPROFLOXACIN
     Indication: Colitis
     Dosage: 500 MILLIGRAM, EVERY 12 HRS
     Dates: start: 20250303, end: 20250305
  6. FLAGYL [Interacting]
     Active Substance: METRONIDAZOLE\METRONIDAZOLE HYDROCHLORIDE
     Indication: Colitis
     Dosage: 500 MILLIGRAM, EVERY 8 HRS
     Dates: start: 20250303, end: 20250305
  7. AMIODARONE [Interacting]
     Active Substance: AMIODARONE
     Indication: Product used for unknown indication
     Dosage: 0.5 MILLIGRAM, EVERY 12 HRS
     Dates: end: 20250228
  8. METRONIDAZOLE [Interacting]
     Active Substance: METRONIDAZOLE
     Indication: Product used for unknown indication
     Dosage: 500 MILLIGRAM, EVERY 8 HRS
     Dates: start: 20250301, end: 20250303
  9. AMIKACIN [Concomitant]
     Active Substance: AMIKACIN
     Dates: start: 20250301, end: 20250301
  10. ENOXAPARIN SODIUM [Concomitant]
     Active Substance: ENOXAPARIN SODIUM
     Dosage: 80 MILLIGRAM, 1/DAY
     Dates: start: 20250303
  11. BISOPROLOL [Concomitant]
     Active Substance: BISOPROLOL
     Dosage: 1.25 MILLIGRAM, EVERY 12 HRS
  12. KETOROLAC TROMETHAMINE [Concomitant]
     Active Substance: KETOROLAC TROMETHAMINE
     Dates: start: 20250302, end: 20250302
  13. CEFTRIAXONE [Concomitant]
     Active Substance: CEFTRIAXONE
     Dosage: 2 GRAM, 1/DAY
     Dates: start: 20250228, end: 20250302
  14. CEFTRIAXONE [Concomitant]
     Active Substance: CEFTRIAXONE
     Dosage: 2 GRAM, 1/DAY
     Dates: start: 20250307, end: 20250309
  15. Dafalgan direct [Concomitant]
     Dosage: 1 GRAM, EVERY 6 HRS
     Dates: start: 20250301, end: 20250304
  16. Dafalgan direct [Concomitant]
  17. KCl Sintetica [Concomitant]
     Dosage: 80 MILLIMOLE, EVERY 8 HRS
     Dates: start: 20250305
  18. MAGNESIUM SULFATE [Concomitant]
     Active Substance: MAGNESIUM SULFATE

REACTIONS (3)
  - Electrocardiogram QT prolonged [Recovered/Resolved]
  - Drug interaction [Recovered/Resolved]
  - Overdose [Unknown]

NARRATIVE: CASE EVENT DATE: 20250301
